FAERS Safety Report 21576456 (Version 1)
Quarter: 2022Q4

REPORT INFORMATION
  Report Type: Spontaneous
  Country: US (occurrence: None)
  Receive Date: 20221109
  Receipt Date: 20221109
  Transmission Date: 20230113
  Serious: No
  Sender: FDA-Public Use
  Company Number: None

PATIENT
  Age: 23 Year
  Sex: Female

DRUGS (1)
  1. LACOSAMIDE [Suspect]
     Active Substance: LACOSAMIDE
     Indication: Epilepsy
     Dosage: FREQUENCY : DAILY; 1 TABLET IN  MORNING. 1.5 TABLETS IN EVENING?
     Route: 048
     Dates: start: 20220621

REACTIONS (2)
  - Change in seizure presentation [None]
  - Product substitution issue [None]

NARRATIVE: CASE EVENT DATE: 20221107
